FAERS Safety Report 6772210-X (Version None)
Quarter: 2010Q2

REPORT INFORMATION
  Report Type: 
  Country: None (occurrence: None)
  Receive Date: 20100616
  Receipt Date: 20100605
  Transmission Date: 20101027
  Serious: Yes (Hospitalization)
  Sender: FDA-Public Use
  Company Number: US-BAYER-201027789GPV

PATIENT
  Age: 10 Year
  Sex: Male

DRUGS (9)
  1. CIPROFLOXACIN [Suspect]
     Indication: BACTERIAL SEPSIS
     Route: 065
  2. MEROPENEM [Concomitant]
     Indication: SEPSIS
  3. TEICOPLANIN [Concomitant]
     Indication: SEPSIS
  4. AMIKACIN [Concomitant]
     Indication: SEPSIS
  5. ACYCLOVIR [Concomitant]
     Indication: ENCEPHALITIS HERPES
  6. FLUIDS [Concomitant]
     Indication: TYPHOID FEVER
  7. DOPAMINE HCL [Concomitant]
     Indication: HYPOTENSION
  8. ISOPROTERENOL HCL [Concomitant]
     Indication: BRADYCARDIA
  9. VANCOMYCIN [Concomitant]
     Indication: DRUG USE FOR UNKNOWN INDICATION

REACTIONS (6)
  - DISSEMINATED INTRAVASCULAR COAGULATION [None]
  - FIBRIN D DIMER INCREASED [None]
  - MULTI-ORGAN FAILURE [None]
  - PLEURAL EFFUSION [None]
  - PROTHROMBIN LEVEL DECREASED [None]
  - THROMBOCYTOPENIA [None]
